FAERS Safety Report 20494893 (Version 1)
Quarter: 2022Q1

REPORT INFORMATION
  Report Type: Spontaneous
  Country: US (occurrence: US)
  Receive Date: 20220221
  Receipt Date: 20220221
  Transmission Date: 20220423
  Serious: No
  Sender: FDA-Public Use
  Company Number: US-NOVARTISTESTPH-NVSC2022US038203

PATIENT
  Sex: Male
  Weight: 270 kg

DRUGS (1)
  1. COSENTYX [Suspect]
     Active Substance: SECUKINUMAB
     Indication: Product used for unknown indication
     Dosage: 150 MG, 10QD
     Route: 065

REACTIONS (2)
  - Fatigue [Recovering/Resolving]
  - Inappropriate schedule of product administration [Unknown]
